FAERS Safety Report 17822436 (Version 2)
Quarter: 2020Q2

REPORT INFORMATION
  Report Type: Report from Study
  Country: US (occurrence: US)
  Receive Date: 20200526
  Receipt Date: 20200624
  Transmission Date: 20200714
  Serious: No
  Sender: FDA-Public Use
  Company Number: US-SHIRE-US202017288

PATIENT
  Sex: Male
  Weight: 78.01 kg

DRUGS (4)
  1. GATTEX [Suspect]
     Active Substance: TEDUGLUTIDE\WATER
     Indication: SHORT-BOWEL SYNDROME
     Dosage: 0.4 MILLILITER, 1X/DAY:QD
     Route: 058
  2. LOMOTIL [Interacting]
     Active Substance: ATROPINE SULFATE\DIPHENOXYLATE HYDROCHLORIDE
     Indication: DECREASED APPETITE
     Route: 065
  3. GATTEX [Interacting]
     Active Substance: TEDUGLUTIDE\WATER
     Dosage: 0.365 UNK, 1X/DAY:QD
     Route: 058
     Dates: start: 20200228
  4. GATTEX [Interacting]
     Active Substance: TEDUGLUTIDE\WATER
     Dosage: 0.3 MILLILITER, 1X/DAY:QD
     Route: 065

REACTIONS (5)
  - Amylase increased [Unknown]
  - Decreased appetite [Not Recovered/Not Resolved]
  - Weight increased [Not Recovered/Not Resolved]
  - Drug interaction [Recovering/Resolving]
  - Lipase increased [Unknown]
